FAERS Safety Report 18354448 (Version 2)
Quarter: 2020Q4

REPORT INFORMATION
  Report Type: Spontaneous
  Country: US (occurrence: US)
  Receive Date: 20201007
  Receipt Date: 20201008
  Transmission Date: 20210114
  Serious: Yes (Other)
  Sender: FDA-Public Use
  Company Number: US-PFIZER INC-2020383264

PATIENT
  Age: 52 Year
  Sex: Female

DRUGS (8)
  1. HEPARIN SODIUM. [Suspect]
     Active Substance: HEPARIN SODIUM
     Indication: ATRIAL FIBRILLATION
     Dosage: CONTINUOUS INTRAVENOUS UNFRACTIONATED HEPARIN INFUSION
     Route: 042
  2. ESCITALOPRAM [Concomitant]
     Active Substance: ESCITALOPRAM OXALATE
     Dosage: UNK
  3. AMIODARONE [Concomitant]
     Active Substance: AMIODARONE
     Dosage: UNK
  4. DARATUMUMAB [Concomitant]
     Active Substance: DARATUMUMAB
     Dosage: UNK
  5. MEXILETINE [Concomitant]
     Active Substance: MEXILETINE
     Dosage: UNK
  6. ASPIRIN (E.C.) [Concomitant]
     Active Substance: ASPIRIN
     Dosage: UNK
  7. EPLERENONE. [Concomitant]
     Active Substance: EPLERENONE
     Dosage: UNK
  8. METOLAZONE. [Concomitant]
     Active Substance: METOLAZONE
     Dosage: UNK

REACTIONS (1)
  - Bullous haemorrhagic dermatosis [Recovered/Resolved]
